FAERS Safety Report 14449028 (Version 3)
Quarter: 2018Q4

REPORT INFORMATION
  Report Type: Spontaneous
  Country: JP (occurrence: JP)
  Receive Date: 20180126
  Receipt Date: 20181101
  Transmission Date: 20190204
  Serious: Yes (Hospitalization, Other)
  Sender: FDA-Public Use
  Company Number: JP-GLAXOSMITHKLINE-JP2018GSK013159

PATIENT

DRUGS (7)
  1. VOLTAREN (DICLOFENAC POTASSIUM) [Suspect]
     Active Substance: DICLOFENAC POTASSIUM
     Indication: CROWNED DENS SYNDROME
     Dosage: 25 MG, TID
     Route: 048
     Dates: start: 20170508, end: 20170518
  2. MECOBALAMIN [Concomitant]
     Active Substance: METHYLCOBALAMIN
     Indication: NEURALGIA
     Dosage: 500 UG, TID
     Route: 048
  3. UBRETID [Concomitant]
     Active Substance: DISTIGMINE BROMIDE
     Indication: BENIGN PROSTATIC HYPERPLASIA
     Dosage: 5 MG, QD
     Route: 048
  4. TOCOPHEROL [Concomitant]
     Active Substance: TOCOPHEROL
     Indication: NEURALGIA
     Dosage: 100 MG, TID
     Route: 048
  5. URIEF [Concomitant]
     Active Substance: SILODOSIN
     Indication: BENIGN PROSTATIC HYPERPLASIA
     Dosage: 4 MG, BID
     Route: 048
     Dates: end: 20170617
  6. MEIACT [Concomitant]
     Active Substance: CEFDITOREN PIVOXIL
     Indication: CYSTITIS
     Dosage: 100 MG, TID
     Route: 048
     Dates: start: 20170516, end: 20170519
  7. MAGMITT [Concomitant]
     Active Substance: MAGNESIUM OXIDE
     Indication: CONSTIPATION
     Dosage: 330 MG, TID
     Route: 048

REACTIONS (10)
  - Pruritus [Recovering/Resolving]
  - Neutrophil count increased [Recovered/Resolved]
  - Rash pustular [Recovering/Resolving]
  - Blister [Recovering/Resolving]
  - Erythema [Unknown]
  - Rash [Unknown]
  - Chondrocalcinosis pyrophosphate [Unknown]
  - Erythema multiforme [Recovered/Resolved]
  - Erythema annulare [Recovered/Resolved]
  - Purpura [Recovered/Resolved]

NARRATIVE: CASE EVENT DATE: 20170513
